FAERS Safety Report 12760811 (Version 1)
Quarter: 2016Q3

REPORT INFORMATION
  Report Type: Spontaneous
  Country: US (occurrence: US)
  Receive Date: 20160919
  Receipt Date: 20160919
  Transmission Date: 20161109
  Serious: No
  Sender: FDA-Public Use
  Company Number: US-ALLERGAN-1657520US

PATIENT
  Sex: Female

DRUGS (1)
  1. VANIQA [Suspect]
     Active Substance: EFLORNITHINE HYDROCHLORIDE
     Indication: HAIR GROWTH ABNORMAL
     Dosage: UNK, QD
     Route: 061
     Dates: start: 201604, end: 20160517

REACTIONS (4)
  - Nausea [Unknown]
  - Feeding disorder [Unknown]
  - Malaise [Unknown]
  - Headache [Unknown]
